FAERS Safety Report 7799976-4 (Version None)
Quarter: 2011Q4

REPORT INFORMATION
  Report Type: 
  Country: None (occurrence: None)
  Receive Date: 20111006
  Receipt Date: 20110927
  Transmission Date: 20120403
  Serious: Yes (Death, Hospitalization)
  Sender: FDA-Public Use
  Company Number: AT-JNJFOC-20110900155

PATIENT
  Sex: Male
  Weight: 77 kg

DRUGS (17)
  1. LAEVOLAC [Concomitant]
     Indication: CONSTIPATION
     Route: 048
  2. BUPRENORPHINE [Concomitant]
     Indication: PAIN
     Dosage: AS NEEDED
     Route: 062
     Dates: start: 20110901, end: 20110902
  3. LEVOCETIRIZINE DIHYDROCHLORIDE [Concomitant]
     Indication: HYPERSENSITIVITY
     Route: 065
     Dates: start: 20110902, end: 20110904
  4. PREDNISOLONE [Suspect]
     Indication: PROSTATE CANCER METASTATIC
     Route: 065
  5. IMPORTAL [Concomitant]
     Indication: CONSTIPATION
     Route: 048
  6. CAL-D-VITA [Concomitant]
     Indication: OSTEOPOROSIS PROPHYLAXIS
     Route: 048
  7. VOLTAREN [Concomitant]
     Indication: PAIN
     Route: 048
  8. PANTOPRAZOLE SODIUM [Concomitant]
     Indication: GASTROINTESTINAL DISORDER THERAPY
     Route: 048
  9. ZOMETA [Suspect]
     Indication: OSTEOPOROSIS PROPHYLAXIS
     Route: 042
     Dates: end: 20110811
  10. LEVOTHYROXINE SODIUM [Concomitant]
     Indication: GOITRE
     Route: 048
  11. SINTROM [Concomitant]
     Indication: PROPHYLAXIS
     Route: 048
  12. HYDROMORPHONE HCL [Concomitant]
     Indication: PAIN
     Dosage: AS NEEDED
     Route: 048
  13. ABIRATERONE ACETATE [Suspect]
     Route: 048
  14. ABIRATERONE ACETATE [Suspect]
     Indication: PROSTATE CANCER METASTATIC
     Route: 048
     Dates: start: 20110324, end: 20110914
  15. NOVALGIN [Concomitant]
     Indication: PAIN
     Route: 048
  16. SELOKEN RETARD (METOPROLOL) [Concomitant]
     Indication: HYPERTENSION
     Route: 048
  17. AMLODIPINE [Concomitant]
     Indication: HYPERTENSION
     Route: 048

REACTIONS (3)
  - OSTEOSCLEROSIS [None]
  - PROSTATE CANCER METASTATIC [None]
  - CONSTIPATION [None]
